FAERS Safety Report 9556984 (Version 2)
Quarter: 2013Q3

REPORT INFORMATION
  Report Type: Spontaneous
  Country: US (occurrence: US)
  Receive Date: 20130926
  Receipt Date: 20130926
  Transmission Date: 20140515
  Serious: Yes (Other)
  Sender: FDA-Public Use
  Company Number: PHHY2012US093676

PATIENT
  Sex: Female
  Weight: 74.38 kg

DRUGS (4)
  1. LOPRESSOR [Suspect]
     Dosage: UNK UKN, UNK
  2. METOPROLOL [Suspect]
     Indication: HYPERTENSION
     Dosage: 25 MG, DAILY
     Route: 048
     Dates: start: 20120705, end: 20120814
  3. TOPROL [Suspect]
  4. NORVASC [Suspect]
     Indication: HYPERTENSION
     Dosage: 10 MG, DAILY
     Route: 048
     Dates: start: 20081125, end: 20090902

REACTIONS (4)
  - Lacrimation increased [Unknown]
  - Nasal congestion [Unknown]
  - Malaise [Unknown]
  - Drug ineffective [Unknown]
